FAERS Safety Report 6702494-5 (Version None)
Quarter: 2010Q2

REPORT INFORMATION
  Report Type: 
  Country: None (occurrence: None)
  Receive Date: 20100429
  Receipt Date: 20100422
  Transmission Date: 20101027
  Serious: Yes (Life-Threatening, Hospitalization)
  Sender: FDA-Public Use
  Company Number: B0650402A

PATIENT
  Age: 50 Year
  Sex: Male

DRUGS (1)
  1. ZINADOL [Suspect]
     Indication: UPPER RESPIRATORY TRACT INFECTION
     Dosage: 500MG TWICE PER DAY
     Route: 048
     Dates: start: 20100315, end: 20100315

REACTIONS (4)
  - DIZZINESS [None]
  - DYSPNOEA [None]
  - FACE OEDEMA [None]
  - HYPERSENSITIVITY [None]
